FAERS Safety Report 19530196 (Version 1)
Quarter: 2021Q3

REPORT INFORMATION
  Report Type: Report from Study
  Country: GB (occurrence: GB)
  Receive Date: 20210713
  Receipt Date: 20210713
  Transmission Date: 20211014
  Serious: Yes (Other)
  Sender: FDA-Public Use
  Company Number: GB-TEVA-2021-GB-1930808

PATIENT
  Age: 67 Year
  Sex: Female

DRUGS (54)
  1. PACLITAXEL. [Suspect]
     Active Substance: PACLITAXEL
     Indication: HER2 POSITIVE BREAST CANCER
     Dosage: 141 MG, WEEKLY
     Route: 042
     Dates: start: 20180220, end: 20180320
  2. GABAPENTIN. [Concomitant]
     Active Substance: GABAPENTIN
     Dosage: 600 MG, (TIME INTERVAL: 0.33 D)
     Route: 048
     Dates: start: 20170215, end: 20171113
  3. MEROPENEM. [Concomitant]
     Active Substance: MEROPENEM
     Dosage: 1 G, (TIME INTERVAL: 0.33 D)
     Route: 042
     Dates: start: 20180913, end: 20180921
  4. METOCLOPRAMIDE. [Concomitant]
     Active Substance: METOCLOPRAMIDE
     Indication: GASTROOESOPHAGEAL REFLUX DISEASE
     Dosage: 10 MG, UNK
     Route: 048
     Dates: start: 20170214
  5. OMEPRAZOLE. [Concomitant]
     Active Substance: OMEPRAZOLE
     Dosage: 20 MILLIGRAM DAILY;
     Route: 048
     Dates: start: 20180515
  6. AQUEOUS CREAM [Concomitant]
     Dosage: UNK
     Route: 061
     Dates: start: 20160819, end: 20161011
  7. CHLORPHENAMINE [Concomitant]
     Active Substance: CHLORPHENIRAMINE MALEATE
     Indication: RASH
     Dosage: 10 MG, WEEKLY
     Route: 042
     Dates: start: 20180220, end: 20180424
  8. CO?AMOXICLAV [Concomitant]
     Active Substance: AMOXICILLIN\CLAVULANATE POTASSIUM
     Dosage: 625 MG, (TIME INTERVAL: 0.33 D)
     Route: 048
     Dates: start: 20180326, end: 20180326
  9. DEXAMETHASONE. [Concomitant]
     Active Substance: DEXAMETHASONE
     Dosage: 8 MG, WEEKLY
     Route: 042
     Dates: start: 20180220, end: 20180424
  10. DEXAMETHASONE. [Concomitant]
     Active Substance: DEXAMETHASONE
     Dosage: 16 MILLIGRAM DAILY;
     Route: 048
     Dates: start: 20180717, end: 20180719
  11. VANCOMYCIN [Concomitant]
     Active Substance: VANCOMYCIN
     Dosage: 1 GRAM DAILY;
     Route: 042
     Dates: start: 20180327, end: 20180327
  12. CHLORPHENAMINE [Concomitant]
     Active Substance: CHLORPHENIRAMINE MALEATE
     Dosage: 10 MG, UNK
     Route: 048
     Dates: start: 20170418
  13. CIPROFLOXACIN. [Concomitant]
     Active Substance: CIPROFLOXACIN
     Dosage: 1000 MILLIGRAM DAILY;
     Route: 048
     Dates: start: 20180326, end: 20180327
  14. GABAPENTIN. [Concomitant]
     Active Substance: GABAPENTIN
     Dosage: 600 MG, (TIME INTERVAL: 0.33 D)
     Route: 048
     Dates: start: 20180213
  15. MAALOX ANTACID [Concomitant]
     Active Substance: ALUMINUM HYDROXIDE\DIMETHICONE\MAGNESIUM HYDROXIDE
     Indication: GASTROOESOPHAGEAL REFLUX DISEASE
     Dosage: 10 ML, UNK
     Route: 048
     Dates: start: 20170214, end: 20170418
  16. ONDANSETRON [Concomitant]
     Active Substance: ONDANSETRON
     Dosage: 8 MG, WEEKLY
     Route: 048
     Dates: start: 20180220, end: 20180424
  17. RANITIDINE. [Concomitant]
     Active Substance: RANITIDINE
     Dosage: 50 MG, WEEKLY
     Route: 042
     Dates: start: 20180220, end: 20180424
  18. CLEXANE [Concomitant]
     Active Substance: ENOXAPARIN SODIUM
     Dosage: 40 MILLIGRAM DAILY;
     Route: 058
     Dates: start: 20180913
  19. DENOSUMAB [Concomitant]
     Active Substance: DENOSUMAB
     Dosage: 120 MG, MONTHLY
     Route: 058
     Dates: start: 20160701
  20. DEXAMETHASONE. [Concomitant]
     Active Substance: DEXAMETHASONE
     Dosage: 14 MILLIGRAM DAILY;
     Route: 048
     Dates: start: 20180720, end: 20180720
  21. DEXAMETHASONE. [Concomitant]
     Active Substance: DEXAMETHASONE
     Dosage: 8 MG, WEEKLY
     Route: 042
     Dates: start: 20160617
  22. POLYFUSOR NA PHOSPHATES [Concomitant]
     Dosage: 150 ML DAILY;
     Route: 042
     Dates: start: 20180917, end: 20180917
  23. POLYFUSOR NA PHOSPHATES [Concomitant]
     Dosage: 100 ML DAILY;
     Route: 042
     Dates: start: 20180920, end: 20180920
  24. LETROZOLE. [Suspect]
     Active Substance: LETROZOLE
     Indication: HER2 POSITIVE BREAST CANCER
     Dosage: 2.5 MILLIGRAM DAILY;
     Route: 048
     Dates: start: 20161111, end: 20171114
  25. PACLITAXEL. [Suspect]
     Active Substance: PACLITAXEL
     Dosage: 138 MG, WEEKLY
     Route: 042
     Dates: start: 20160617, end: 20161014
  26. BECONASE AQ [Concomitant]
     Active Substance: BECLOMETHASONE DIPROPIONATE MONOHYDRATE
     Dosage: UNK UNK, 2X/DAY
     Route: 055
  27. MEGACE [Concomitant]
     Active Substance: MEGESTROL ACETATE
     Dosage: 160 MILLIGRAM DAILY;
     Route: 048
     Dates: start: 20180925, end: 2019
  28. NOZINAN [Concomitant]
     Active Substance: LEVOMEPROMAZINE
     Dosage: 6 MILLIGRAM DAILY;
     Route: 048
  29. NYSTATIN. [Concomitant]
     Active Substance: NYSTATIN
     Dosage: 1 ML, (TIME INTERVAL: 0.25 D)
     Route: 048
     Dates: start: 20180917, end: 20180926
  30. ONDANSETRON [Concomitant]
     Active Substance: ONDANSETRON
     Dosage: 8 MG, UNK
     Route: 048
     Dates: start: 20160617, end: 20161014
  31. PARACETAMOL [Concomitant]
     Active Substance: ACETAMINOPHEN
     Dosage: 1 G, UNK
     Route: 048
     Dates: start: 20170418
  32. ADCAL?D3 [Concomitant]
     Active Substance: CALCIUM CARBONATE\CHOLECALCIFEROL
     Dosage: 1 DF
     Route: 048
     Dates: start: 20160701
  33. LAXIDO [Concomitant]
     Active Substance: POLYETHYLENE GLYCOL 3350\POTASSIUM CHLORIDE\SODIUM BICARBONATE\SODIUM CHLORIDE
     Indication: CONSTIPATION
     Dosage: UNK
     Route: 048
     Dates: start: 20170201
  34. PHOSPHATE SANDOZ EFFERVESCENT [Concomitant]
     Dosage: 1 DF, UNK
     Route: 048
     Dates: start: 20180921, end: 20180924
  35. PACLITAXEL. [Suspect]
     Active Substance: PACLITAXEL
     Dosage: 108 MG, WEEKLY
     Route: 042
     Dates: start: 20180403, end: 20180424
  36. VORHYALURONIDASE ALFA [Suspect]
     Active Substance: HYALURONIDASE (HUMAN RECOMBINANT)
     Indication: HER2 POSITIVE BREAST CANCER
     Dosage: 600 MG, EVERY 3 WEEKS
     Route: 058
     Dates: start: 20160617, end: 20180914
  37. TRASTUZUMAB. [Suspect]
     Active Substance: TRASTUZUMAB
     Indication: HER2 POSITIVE BREAST CANCER
     Dosage: 600 MG, EVERY 3 WEEKS
     Route: 058
     Dates: start: 20160617, end: 20180914
  38. CHLORPHENAMINE [Concomitant]
     Active Substance: CHLORPHENIRAMINE MALEATE
     Dosage: 10 MG, WEEKLY
     Route: 042
     Dates: start: 20160617, end: 20161014
  39. DALTEPARIN [Concomitant]
     Active Substance: DALTEPARIN
     Dosage: 5000 IU
     Route: 058
     Dates: start: 20180711, end: 20180721
  40. DALTEPARIN [Concomitant]
     Active Substance: DALTEPARIN
     Dosage: 5000 IU
     Route: 058
     Dates: start: 20180325, end: 20180328
  41. DEXAMETHASONE. [Concomitant]
     Active Substance: DEXAMETHASONE
     Dosage: 12 MILLIGRAM DAILY;
     Route: 048
     Dates: start: 20180721, end: 20180723
  42. GABAPENTIN. [Concomitant]
     Active Substance: GABAPENTIN
     Dosage: 900 MG, (TIME INTERVAL: 0.33 D)
     Route: 048
     Dates: start: 20171114, end: 20180212
  43. OMEPRAZOLE. [Concomitant]
     Active Substance: OMEPRAZOLE
     Indication: GASTROOESOPHAGEAL REFLUX DISEASE
     Dosage: 20 MILLIGRAM DAILY;
     Route: 048
     Dates: start: 20170201, end: 20170214
  44. ORAMORPH [Concomitant]
     Active Substance: MORPHINE SULFATE
     Dosage: 2.5 MG, UNK
     Route: 048
     Dates: start: 20180913
  45. VANCOMYCIN [Concomitant]
     Active Substance: VANCOMYCIN
     Dosage: 750 MG, UNK
     Route: 042
     Dates: start: 20180328, end: 20180329
  46. CYCLIZINE [Concomitant]
     Active Substance: CYCLIZINE
     Dosage: 50 MG, TIME INTERVAL: 0.33 D
     Route: 048
     Dates: start: 20180327, end: 20180522
  47. DEXAMETHASONE. [Concomitant]
     Active Substance: DEXAMETHASONE
     Dosage: 10 MILLIGRAM DAILY;
     Route: 048
     Dates: start: 20180723, end: 20180801
  48. FLUCONAZOLE. [Concomitant]
     Active Substance: FLUCONAZOLE
     Dosage: 50 MILLIGRAM DAILY;
     Route: 048
     Dates: start: 20180917, end: 20180926
  49. GABAPENTIN. [Concomitant]
     Active Substance: GABAPENTIN
     Dosage: 400 MG, (TIME INTERVAL:)
     Route: 048
  50. HYPROMELLOSE [Concomitant]
     Active Substance: HYPROMELLOSES
     Dosage: 1 GTT, UNK
     Route: 047
     Dates: start: 20160802
  51. LORAZEPAM. [Concomitant]
     Active Substance: LORAZEPAM
     Dosage: 0.5 MG, UNK
     Route: 048
     Dates: start: 20181005
  52. METOCLOPRAMIDE. [Concomitant]
     Active Substance: METOCLOPRAMIDE
     Dosage: 10 MG, UNK
     Route: 048
     Dates: start: 20160617
  53. POLYFUSOR NA PHOSPHATES [Concomitant]
     Dosage: 100 ML DAILY;
     Route: 042
     Dates: start: 20180918, end: 20180918
  54. RANITIDINE. [Concomitant]
     Active Substance: RANITIDINE
     Dosage: 50 MG, WEEKLY
     Route: 042
     Dates: start: 20160617

REACTIONS (4)
  - Erythema [Recovered/Resolved]
  - Neuropathy peripheral [Recovered/Resolved]
  - Paraesthesia [Not Recovered/Not Resolved]
  - Fatigue [Recovered/Resolved]

NARRATIVE: CASE EVENT DATE: 20160819
